FAERS Safety Report 23512199 (Version 1)
Quarter: 2024Q1

REPORT INFORMATION
  Report Type: Spontaneous
  Country: US (occurrence: US)
  Receive Date: 20240212
  Receipt Date: 20240212
  Transmission Date: 20240409
  Serious: No
  Sender: FDA-Public Use
  Company Number: US-BRISTOL-MYERS SQUIBB COMPANY-2024-021181

PATIENT
  Age: 79 Year
  Sex: Male
  Weight: 89.81 kg

DRUGS (1)
  1. POMALYST [Suspect]
     Active Substance: POMALIDOMIDE
     Indication: Plasma cell myeloma
     Dosage: 2WKSON, 1WKOFF
     Route: 048

REACTIONS (3)
  - Hypoacusis [Recovering/Resolving]
  - Tremor [Recovering/Resolving]
  - Off label use [Unknown]
